FAERS Safety Report 20860759 (Version 1)
Quarter: 2022Q2

REPORT INFORMATION
  Report Type: Report from Study
  Country: ES (occurrence: ES)
  Receive Date: 20220523
  Receipt Date: 20220523
  Transmission Date: 20220721
  Serious: Yes (Hospitalization, Other)
  Sender: FDA-Public Use
  Company Number: ES-FERRINGPH-2022FE02251

PATIENT
  Age: 15 Year
  Sex: Female

DRUGS (2)
  1. MESALAMINE [Suspect]
     Active Substance: MESALAMINE
     Indication: Colitis ulcerative
     Dosage: 1 GRAM, QD
     Route: 061
     Dates: start: 20211202, end: 20211216
  2. MESALAMINE [Suspect]
     Active Substance: MESALAMINE
     Dosage: 4 GRAM, QD
     Route: 048
     Dates: start: 20211202, end: 20211216

REACTIONS (1)
  - Myopericarditis [Recovered/Resolved]

NARRATIVE: CASE EVENT DATE: 20211215
